FAERS Safety Report 18287283 (Version 1)
Quarter: 2020Q3

REPORT INFORMATION
  Report Type: Spontaneous
  Country: US (occurrence: US)
  Receive Date: 20200917
  Receipt Date: 20200917
  Transmission Date: 20201103
  Serious: Yes (Hospitalization)
  Sender: FDA-Public Use
  Company Number: None

PATIENT
  Age: 9 Year
  Sex: Male
  Weight: 21.1 kg

DRUGS (2)
  1. BINIMETINIB 15 MG TABLET [Suspect]
     Active Substance: BINIMETINIB
     Indication: NEUROFIBROMA
     Route: 048
     Dates: start: 20190328
  2. BINIMETINIB 1 MG/ML SUSPENSION [Suspect]
     Active Substance: BINIMETINIB
     Indication: NEUROFIBROMA
     Dosage: ?          OTHER ROUTE:ORAL/G?TUBE?
     Route: 048
     Dates: start: 20190328

REACTIONS (3)
  - Hypoglycaemia [None]
  - Constipation [None]
  - Weight decreased [None]

NARRATIVE: CASE EVENT DATE: 20200914
